FAERS Safety Report 5106821-4 (Version None)
Quarter: 2006Q3

REPORT INFORMATION
  Report Type: 
  Country: None (occurrence: None)
  Receive Date: 20060731
  Receipt Date: 20051115
  Transmission Date: 20061208
  Serious: Yes (Death, Hospitalization)
  Sender: FDA-Public Use
  Company Number: US-JNJFOC-20051001064

PATIENT
  Age: 80 Year
  Sex: Male
  Weight: 56.6996 kg

DRUGS (2)
  1. RISPERDAL [Suspect]
     Indication: DEMENTIA
     Dosage: ORAL
     Route: 048
  2. ULTRAM [Suspect]
     Indication: DRUG USE FOR UNKNOWN INDICATION
     Dosage: ORAL
     Route: 048

REACTIONS (1)
  - CARDIO-RESPIRATORY ARREST [None]
